FAERS Safety Report 19584143 (Version 1)
Quarter: 2021Q3

REPORT INFORMATION
  Report Type: Report from Study
  Country: JP (occurrence: JP)
  Receive Date: 20210720
  Receipt Date: 20210720
  Transmission Date: 20211014
  Serious: Yes (Life-Threatening, Hospitalization, Other)
  Sender: FDA-Public Use
  Company Number: JP-BRISTOL-MYERS SQUIBB COMPANY-BMS-2021-031454

PATIENT
  Age: 53 Year
  Sex: Male
  Weight: 89.1 kg

DRUGS (19)
  1. NIVOLUMAB [Suspect]
     Active Substance: NIVOLUMAB
     Indication: METASTATIC RENAL CELL CARCINOMA
     Dosage: 240 MILLIGRAM, ONE TIME DOSE
     Route: 041
     Dates: start: 20210120, end: 20210120
  2. IPILIMUMAB [Suspect]
     Active Substance: IPILIMUMAB
     Dosage: 1 MILLIGRAM/KILOGRAM, ONE TIME DOSE
     Route: 041
     Dates: start: 20210322, end: 20210322
  3. IPILIMUMAB [Suspect]
     Active Substance: IPILIMUMAB
     Dosage: 1 MILLIGRAM/KILOGRAM, ONE TIME DOSE
     Route: 041
     Dates: start: 20210412, end: 20210412
  4. PREDNISOLONE. [Suspect]
     Active Substance: PREDNISOLONE
     Dosage: 15 MILLIGRAM, BID
     Route: 048
     Dates: start: 20210225
  5. FERROUS CITRATE NA [Suspect]
     Active Substance: SODIUM FERROUS CITRATE
     Indication: HAEMOGLOBIN DECREASED
  6. BISOPROLOL FUMARATE YOSHINDO [Suspect]
     Active Substance: BISOPROLOL FUMARATE
     Indication: HYPERTENSION
     Dosage: 5 MILLIGRAM, QD
     Route: 048
     Dates: start: 20201228, end: 20210303
  7. LIXIANA [Concomitant]
     Active Substance: EDOXABAN TOSYLATE
     Indication: PRODUCT USED FOR UNKNOWN INDICATION
     Dosage: 60 MILLIGRAM
     Route: 065
     Dates: end: 20210214
  8. NIVOLUMAB [Suspect]
     Active Substance: NIVOLUMAB
     Dosage: 240 MILLIGRAM, ONE TIME DOSE
     Route: 041
     Dates: start: 20210412, end: 20210412
  9. IPILIMUMAB [Suspect]
     Active Substance: IPILIMUMAB
     Indication: METASTATIC RENAL CELL CARCINOMA
     Dosage: 1 MILLIGRAM/KILOGRAM, ONE TIME DOSE
     Route: 041
     Dates: start: 20210120, end: 20210120
  10. FERROUS CITRATE NA [Suspect]
     Active Substance: SODIUM FERROUS CITRATE
     Indication: HAEMATURIA
     Dosage: 200 MILLIGRAM, QD
     Route: 048
     Dates: start: 20210217, end: 20210224
  11. LOPERAMIDE [Suspect]
     Active Substance: LOPERAMIDE
     Indication: COLITIS
     Dosage: 4 MILLIGRAM, QD
     Route: 048
     Dates: start: 20210213, end: 20210303
  12. LIXIANA [Concomitant]
     Active Substance: EDOXABAN TOSYLATE
     Dosage: 30 MILLIGRAM
     Route: 065
     Dates: start: 20210214, end: 20210215
  13. PREDNISOLONE. [Suspect]
     Active Substance: PREDNISOLONE
     Indication: COLITIS
     Dosage: 20 MILLIGRAM, BID
     Route: 048
     Dates: start: 20210222, end: 20210224
  14. CABOMETYX [Suspect]
     Active Substance: CABOZANTINIB S-MALATE
     Indication: RENAL CELL CARCINOMA
     Dosage: 40 MILLIGRAM
     Route: 065
     Dates: start: 20210606, end: 20210701
  15. BISOPROLOL FUMARATE YOSHINDO [Suspect]
     Active Substance: BISOPROLOL FUMARATE
     Dosage: 5 MILLIGRAM
     Route: 048
     Dates: start: 20210308
  16. BEZAFIBRATE [Suspect]
     Active Substance: BEZAFIBRATE
     Indication: HYPERLIPIDAEMIA
     Dosage: 400 MILLIGRAM, QD
     Route: 048
     Dates: start: 20201228, end: 20210303
  17. LIXIANA [Concomitant]
     Active Substance: EDOXABAN TOSYLATE
     Dosage: 60 MILLIGRAM, QD
     Route: 065
  18. BENZBROMARONE [Suspect]
     Active Substance: BENZBROMARONE
     Indication: HYPERURICAEMIA
     Dosage: 50 MILLIGRAM, QD
     Route: 048
     Dates: start: 20201228, end: 20210303
  19. NIVOLUMAB [Suspect]
     Active Substance: NIVOLUMAB
     Dosage: 240 MILLIGRAM, ONE TIME DOSE
     Route: 041
     Dates: start: 20210322, end: 20210322

REACTIONS (3)
  - Haematuria [Recovered/Resolved]
  - Shock haemorrhagic [Unknown]
  - Cytopenia [Recovered/Resolved]

NARRATIVE: CASE EVENT DATE: 20210313
